FAERS Safety Report 6366468-9 (Version None)
Quarter: 2009Q3

REPORT INFORMATION
  Report Type: 
  Country: None (occurrence: None)
  Receive Date: 20090921
  Receipt Date: 20090917
  Transmission Date: 20100115
  Serious: Yes (Life-Threatening, Hospitalization, Disabling)
  Sender: FDA-Public Use
  Company Number: US-ELI_LILLY_AND_COMPANY-US200801003034

PATIENT
  Sex: Male
  Weight: 78.458 kg

DRUGS (20)
  1. BYETTA [Suspect]
     Indication: DIABETES MELLITUS
     Dosage: 10 UG, 2/D
     Route: 058
     Dates: start: 20060703, end: 20070401
  2. NASONEX [Concomitant]
     Dosage: UNK, UNKNOWN
     Route: 065
  3. ALTACE [Concomitant]
     Dosage: 5 MG, UNKNOWN
     Route: 048
  4. AVANDIA [Concomitant]
     Dosage: 8 MG, UNKNOWN
     Route: 048
  5. VALIUM [Concomitant]
     Dosage: 5 MG, AS NEEDED
     Route: 048
  6. ALLEGRA [Concomitant]
     Dosage: 180 MG, AS NEEDED
     Route: 048
  7. TRICOR [Concomitant]
     Dosage: 145 MG, DAILY (1/D)
     Route: 048
  8. LIPITOR [Concomitant]
     Dosage: 20 MG, EACH EVENING
     Route: 048
  9. ASPIRIN [Concomitant]
     Dosage: 81 MG, DAILY (1/D)
     Route: 048
  10. ACIPHEX [Concomitant]
     Dosage: 20 MG, DAILY (1/D)
     Route: 048
  11. BUPROPION HCL [Concomitant]
     Dosage: 300 MG, DAILY (1/D)
     Route: 048
     Dates: end: 20070101
  12. BUPROPION HCL [Concomitant]
     Dosage: 150 MG, DAILY (1/D)
     Route: 048
     Dates: start: 20070615
  13. SINGULAIR [Concomitant]
     Dosage: 10 MG, DAILY (1/D)
     Route: 048
     Dates: end: 20070101
  14. SINGULAIR [Concomitant]
     Dosage: 10 MG, DAILY (1/D)
     Route: 048
     Dates: start: 20070615
  15. FLOMAX [Concomitant]
     Dosage: 0.4 MG, DAILY (1/D)
     Route: 048
  16. NORVASC [Concomitant]
     Dosage: 5 MG, DAILY (1/D)
     Route: 048
  17. AGGRENOX [Concomitant]
     Dosage: UNK, 2/D
     Route: 048
  18. METFORMIN HCL [Concomitant]
     Dosage: 850 MG, 2/D
     Route: 048
     Dates: end: 20070101
  19. FOLIC ACID [Concomitant]
     Dosage: 1 MG, DAILY (1/D)
     Route: 048
  20. ORAL ANTIDIABETICS [Concomitant]
     Dosage: 100 MG, 2/D
     Route: 048
     Dates: end: 20080401

REACTIONS (12)
  - AORTIC CALCIFICATION [None]
  - ASCITES [None]
  - ATELECTASIS [None]
  - CARDIO-RESPIRATORY ARREST [None]
  - CLOSTRIDIUM DIFFICILE COLITIS [None]
  - ILEUS [None]
  - INFECTION [None]
  - OFF LABEL USE [None]
  - PANCREATITIS NECROTISING [None]
  - PLEURAL EFFUSION [None]
  - RENAL CYST [None]
  - SEPSIS [None]
